FAERS Safety Report 5090387-1 (Version None)
Quarter: 2006Q3

REPORT INFORMATION
  Report Type: 
  Country: None (occurrence: None)
  Receive Date: 20060828
  Receipt Date: 20060816
  Transmission Date: 20061208
  Serious: Yes (Hospitalization)
  Sender: FDA-Public Use
  Company Number: FR-BRISTOL-MYERS SQUIBB COMPANY-13480371

PATIENT
  Age: 75 Year
  Sex: Female

DRUGS (6)
  1. AMIKLIN [Suspect]
     Indication: SEPTIC SHOCK
     Route: 042
     Dates: start: 20060516, end: 20060527
  2. BACTRIM [Suspect]
     Indication: SEPTIC SHOCK
     Route: 042
     Dates: start: 20060516, end: 20060527
  3. TAZOCILLINE [Suspect]
     Indication: SEPTIC SHOCK
     Route: 042
     Dates: start: 20060423, end: 20060502
  4. ERYTHROMYCIN [Suspect]
     Route: 042
     Dates: start: 20060527
  5. CIFLOX [Suspect]
     Indication: SEPTIC SHOCK
     Route: 042
     Dates: start: 20060423, end: 20060502
  6. MOPRAL [Suspect]
     Route: 042
     Dates: start: 20060516

REACTIONS (1)
  - JAUNDICE [None]
